FAERS Safety Report 12698580 (Version 1)
Quarter: 2016Q3

REPORT INFORMATION
  Report Type: Spontaneous
  Country: US (occurrence: US)
  Receive Date: 20160830
  Receipt Date: 20160830
  Transmission Date: 20161109
  Serious: No
  Sender: FDA-Public Use
  Company Number: US-CELGENEUS-USA-2016084826

PATIENT
  Sex: Male
  Weight: 83.54 kg

DRUGS (3)
  1. REVLIMID [Suspect]
     Active Substance: LENALIDOMIDE
     Route: 048
     Dates: start: 201602
  2. REVLIMID [Suspect]
     Active Substance: LENALIDOMIDE
     Dosage: 5-10
     Route: 048
     Dates: start: 201411, end: 201601
  3. REVLIMID [Suspect]
     Active Substance: LENALIDOMIDE
     Indication: PLASMA CELL MYELOMA
     Route: 048
     Dates: start: 20140227

REACTIONS (3)
  - Eyelid margin crusting [Not Recovered/Not Resolved]
  - Sinus headache [Not Recovered/Not Resolved]
  - Multiple allergies [Not Recovered/Not Resolved]
